FAERS Safety Report 11575675 (Version 7)
Quarter: 2017Q3

REPORT INFORMATION
  Report Type: Report from Study
  Country: DE (occurrence: DE)
  Receive Date: 20150930
  Receipt Date: 20170918
  Transmission Date: 20171127
  Serious: Yes (Hospitalization, Other)
  Sender: FDA-Public Use
  Company Number: DE-B.I. PHARMACEUTICALS,INC./RIDGEFIELD-2015-BI-52266DE

PATIENT
  Age: 58 Year
  Sex: Male
  Weight: 79.4 kg

DRUGS (3)
  1. VARGATEF [Suspect]
     Active Substance: NINTEDANIB
     Indication: LUNG ADENOCARCINOMA
     Route: 048
     Dates: start: 20150911
  2. DOCETAXEL. [Suspect]
     Active Substance: DOCETAXEL
     Indication: LUNG ADENOCARCINOMA
     Dosage: DAILY DOSE: 75 MG/M2 BODY SUFACE AREA
     Route: 042
     Dates: start: 20150910
  3. VARGATEF [Suspect]
     Active Substance: NINTEDANIB
     Route: 048
     Dates: start: 20151002

REACTIONS (3)
  - White blood cell count decreased [Recovered/Resolved]
  - Diarrhoea [Recovered/Resolved]
  - Diarrhoea [Recovered/Resolved]

NARRATIVE: CASE EVENT DATE: 20150911
